FAERS Safety Report 25073824 (Version 1)
Quarter: 2025Q1

REPORT INFORMATION
  Report Type: Spontaneous
  Country: US (occurrence: None)
  Receive Date: 20250312
  Receipt Date: 20250312
  Transmission Date: 20250409
  Serious: Yes (Other)
  Sender: FDA-CTU
  Company Number: None

PATIENT
  Sex: Male

DRUGS (5)
  1. HUMIRA [Suspect]
     Active Substance: ADALIMUMAB
     Indication: Crohn^s disease
     Route: 058
     Dates: start: 20210707
  2. AZATHIOPRINE [Concomitant]
     Active Substance: AZATHIOPRINE
  3. BRILINTA [Concomitant]
     Active Substance: TICAGRELOR
  4. HUMIRA [Concomitant]
     Active Substance: ADALIMUMAB
  5. RAPAFLO [Concomitant]
     Active Substance: SILODOSIN

REACTIONS (1)
  - Cerebrovascular accident [None]
